FAERS Safety Report 5506259-1 (Version None)
Quarter: 2007Q4

REPORT INFORMATION
  Report Type: 
  Country: None (occurrence: None)
  Receive Date: 20071105
  Receipt Date: 20071031
  Transmission Date: 20080405
  Serious: Yes (Life-Threatening, Hospitalization, Disabling)
  Sender: FDA-Public Use
  Company Number: CO-JNJFOC-20071100647

PATIENT
  Age: 45 Year
  Sex: Male

DRUGS (2)
  1. NATRECOR [Suspect]
     Indication: MYOCARDIAL INFARCTION
     Route: 042
  2. NATRECOR [Suspect]
     Indication: CARDIAC FAILURE
     Route: 042

REACTIONS (4)
  - CARDIAC ARREST [None]
  - EJECTION FRACTION DECREASED [None]
  - HYPOTENSION [None]
  - PULMONARY ARTERIAL WEDGE PRESSURE DECREASED [None]
